FAERS Safety Report 8347919-7 (Version None)
Quarter: 2012Q2

REPORT INFORMATION
  Report Type: 
  Country: None (occurrence: None)
  Receive Date: 20120509
  Receipt Date: 20120424
  Transmission Date: 20120825
  Serious: Yes (Hospitalization, Other)
  Sender: FDA-Public Use
  Company Number: US-WATSON-2012-07393

PATIENT
  Age: 50 Year
  Sex: Female

DRUGS (1)
  1. GEMCITABINE [Suspect]
     Indication: PANCREATIC CARCINOMA
     Dosage: 1000 MG/M2, DAYS 1,8,15
     Route: 065

REACTIONS (5)
  - POSTERIOR REVERSIBLE ENCEPHALOPATHY SYNDROME [None]
  - GRAND MAL CONVULSION [None]
  - PHOTOPHOBIA [None]
  - DEPRESSED LEVEL OF CONSCIOUSNESS [None]
  - HYPERTENSION [None]
